FAERS Safety Report 4792386-3 (Version None)
Quarter: 2005Q4

REPORT INFORMATION
  Report Type: 
  Country: None (occurrence: None)
  Receive Date: 20051010
  Receipt Date: 20050928
  Transmission Date: 20060501
  Serious: Yes (Other)
  Sender: FDA-Public Use
  Company Number: US-BRISTOL-MYERS SQUIBB COMPANY-13131271

PATIENT
  Age: 65 Year
  Sex: Male

DRUGS (6)
  1. KENALOG-40 [Suspect]
     Indication: RETINAL OEDEMA
     Dates: start: 20050913, end: 20050913
  2. GLUCOTROL [Concomitant]
  3. ZIAC [Concomitant]
  4. TYLENOL (CAPLET) [Concomitant]
  5. LASIX [Concomitant]
  6. OXYCONTIN [Concomitant]

REACTIONS (1)
  - ENDOPHTHALMITIS [None]
